FAERS Safety Report 7000944-0 (Version None)
Quarter: 2010Q3

REPORT INFORMATION
  Report Type: 
  Country: None (occurrence: None)
  Receive Date: 20100902
  Receipt Date: 20100304
  Transmission Date: 20110219
  Serious: Yes (Disabling, Other)
  Sender: FDA-Public Use
  Company Number: 226653USA

PATIENT
  Sex: Female

DRUGS (1)
  1. METOCLOPRAMIDE [Suspect]
     Indication: IMPAIRED GASTRIC EMPTYING
     Dosage: 30-40 MG PER DAY,ORAL
     Route: 048
     Dates: start: 20061101, end: 20071201

REACTIONS (10)
  - ANXIETY [None]
  - ASTHENIA [None]
  - CLUMSINESS [None]
  - DEFORMITY [None]
  - DYSKINESIA [None]
  - DYSPHAGIA [None]
  - MASTICATION DISORDER [None]
  - SPEECH DISORDER [None]
  - TARDIVE DYSKINESIA [None]
  - TREMOR [None]
